FAERS Safety Report 7170136-3 (Version None)
Quarter: 2010Q4

REPORT INFORMATION
  Report Type: 
  Country: None (occurrence: None)
  Receive Date: 20101214
  Receipt Date: 20101214
  Transmission Date: 20110411
  Serious: Yes (Life-Threatening, Disabling)
  Sender: FDA-Public Use
  Company Number: None

PATIENT
  Sex: Male
  Weight: 68.0396 kg

DRUGS (2)
  1. DARVOCET [Suspect]
     Dosage: AS NEEDED 1 EVERY 6-8 HRS, TOOK INFREQUENT
  2. . [Concomitant]

REACTIONS (2)
  - CARDIAC DISORDER [None]
  - PRODUCT SUBSTITUTION ISSUE [None]
